FAERS Safety Report 11786129 (Version 1)
Quarter: 2015Q4

REPORT INFORMATION
  Report Type: Spontaneous
  Country: BR (occurrence: BR)
  Receive Date: 20151130
  Receipt Date: 20151130
  Transmission Date: 20160305
  Serious: Yes (Other)
  Sender: FDA-Public Use
  Company Number: BR-PFIZER INC-2015412558

PATIENT
  Age: 28 Year
  Sex: Male

DRUGS (1)
  1. TECTA [Suspect]
     Active Substance: PANTOPRAZOLE MAGNESIUM
     Indication: OESOPHAGITIS
     Dosage: 40 MG, 2X/DAY
     Route: 048

REACTIONS (1)
  - Oesophageal stenosis [Unknown]
